FAERS Safety Report 10576319 (Version 1)
Quarter: 2014Q4

REPORT INFORMATION
  Report Type: Spontaneous
  Country: US (occurrence: None)
  Receive Date: 20141110
  Receipt Date: 20141110
  Transmission Date: 20150529
  Serious: Yes (Hospitalization)
  Sender: FDA-Public Use
  Company Number: None

PATIENT
  Age: 67 Year
  Sex: Male
  Weight: 106.6 kg

DRUGS (2)
  1. WARFARIN [Suspect]
     Active Substance: WARFARIN
     Dosage: MG, PO
     Route: 048
     Dates: start: 20110929
  2. WARFARIN [Suspect]
     Active Substance: WARFARIN
     Indication: ATRIAL FIBRILLATION
     Dosage: MG, PO
     Route: 048
     Dates: start: 20110929

REACTIONS (3)
  - Haemorrhage [None]
  - Anaemia [None]
  - International normalised ratio abnormal [None]

NARRATIVE: CASE EVENT DATE: 20141023
